FAERS Safety Report 5433857-6 (Version None)
Quarter: 2007Q3

REPORT INFORMATION
  Report Type: 
  Country: None (occurrence: None)
  Receive Date: 20070831
  Receipt Date: 20070712
  Transmission Date: 20080115
  Serious: No
  Sender: FDA-Public Use
  Company Number: A0663314A

PATIENT
  Age: 58 Year
  Sex: Female

DRUGS (4)
  1. ALLI [Suspect]
     Dates: start: 20070710
  2. BYETTA [Concomitant]
  3. GLUCOVANCE [Concomitant]
  4. NOVOLIN 70/30 [Concomitant]

REACTIONS (3)
  - ANOREXIA [None]
  - FATIGUE [None]
  - THERAPEUTIC RESPONSE UNEXPECTED [None]
